FAERS Safety Report 4815282-1 (Version None)
Quarter: 2005Q4

REPORT INFORMATION
  Report Type: 
  Country: None (occurrence: None)
  Receive Date: 20051026
  Receipt Date: 20051012
  Transmission Date: 20060501
  Serious: Yes (Hospitalization, Other)
  Sender: FDA-Public Use
  Company Number: USA040978324

PATIENT
  Age: 81 Year
  Sex: Female
  Weight: 57 kg

DRUGS (13)
  1. FORTEO [Suspect]
     Indication: OSTEOPOROSIS
     Dosage: 20 UG/1 DAY
     Dates: start: 20040201
  2. CELEBREX [Concomitant]
  3. CALCIUM GLUCONATE [Concomitant]
  4. SYNTHROID [Concomitant]
  5. DYAZIDE [Concomitant]
  6. NEURONTIN [Concomitant]
  7. FOSAMAX [Concomitant]
  8. CELEBREX [Concomitant]
  9. PREDNISONE [Concomitant]
  10. FOLIC ACID [Concomitant]
  11. VITAMIN CAP [Concomitant]
  12. OXYCODONE [Concomitant]
  13. COLACE (DOCUSATE SODIUM) [Concomitant]

REACTIONS (28)
  - AORTIC VALVE INCOMPETENCE [None]
  - BACK PAIN [None]
  - BLOOD BICARBONATE DECREASED [None]
  - BLOOD CHLORIDE DECREASED [None]
  - BLOOD PH INCREASED [None]
  - BLOOD PRESSURE SYSTOLIC INCREASED [None]
  - BLOOD SODIUM DECREASED [None]
  - BLOOD UREA INCREASED [None]
  - FATIGUE [None]
  - FIBRIN D DIMER INCREASED [None]
  - HYPOKALAEMIA [None]
  - HYPOXIA [None]
  - INFUSION RELATED REACTION [None]
  - LUNG INFILTRATION [None]
  - MALAISE [None]
  - MITRAL VALVE INCOMPETENCE [None]
  - MUSCLE TIGHTNESS [None]
  - NASAL CONGESTION [None]
  - OEDEMA PERIPHERAL [None]
  - ORAL INTAKE REDUCED [None]
  - PAPILLARY MUSCLE DISORDER [None]
  - PHARMACEUTICAL PRODUCT COMPLAINT [None]
  - PLATELET COUNT INCREASED [None]
  - PNEUMONIA [None]
  - PULMONARY EMBOLISM [None]
  - TENDERNESS [None]
  - THIRST [None]
  - TRICUSPID VALVE INCOMPETENCE [None]
